FAERS Safety Report 10140573 (Version 2)
Quarter: 2014Q3

REPORT INFORMATION
  Report Type: Other
  Country: IT (occurrence: IT)
  Receive Date: 20140429
  Receipt Date: 20140723
  Transmission Date: 20150326
  Serious: Yes (Other)
  Sender: FDA-Public Use
  Company Number: IT-ASTELLAS-2014US004236

PATIENT
  Age: 71 Year
  Sex: Female

DRUGS (3)
  1. MERREM [Concomitant]
     Active Substance: MEROPENEM
     Indication: PRODUCT USED FOR UNKNOWN INDICATION
     Dosage: UNK UNK, UNKNOWN FREQ.
     Route: 065
     Dates: start: 20140325, end: 20140414
  2. AMBISOME [Suspect]
     Active Substance: AMPHOTERICIN B
     Indication: INTERVERTEBRAL DISCITIS
     Route: 042
     Dates: start: 20140410, end: 20140410
  3. CUBICIN [Concomitant]
     Active Substance: DAPTOMYCIN
     Indication: PRODUCT USED FOR UNKNOWN INDICATION
     Dosage: UNK UNK, UNKNOWN FREQ.
     Route: 065
     Dates: start: 20140325, end: 20140414

REACTIONS (3)
  - Erythema [Recovered/Resolved]
  - Hypertension [Recovered/Resolved]
  - Choking sensation [Recovered/Resolved]

NARRATIVE: CASE EVENT DATE: 20140410
